FAERS Safety Report 14977577 (Version 4)
Quarter: 2018Q3

REPORT INFORMATION
  Report Type: Other
  Country: PL (occurrence: PL)
  Receive Date: 20180606
  Receipt Date: 20180731
  Transmission Date: 20181010
  Serious: Yes (Hospitalization, Other)
  Sender: FDA-Public Use
  Company Number: PL-MERCK KGAA-2049045

PATIENT
  Age: 37 Year
  Sex: Female

DRUGS (26)
  1. CEFUROXIME. [Suspect]
     Active Substance: CEFUROXIME
     Route: 065
     Dates: start: 201505
  2. ACETYLSALICYLIC ACID [Suspect]
     Active Substance: ASPIRIN
     Route: 048
     Dates: start: 201503
  3. HEPARIN [Concomitant]
     Active Substance: HEPARIN SODIUM
  4. COLECALCIFEROL W/RISEDRONIC ACID [Concomitant]
  5. ALFACALCIDOL [Concomitant]
     Active Substance: ALFACALCIDOL
  6. METHYLDOPA. [Suspect]
     Active Substance: METHYLDOPA
     Route: 065
     Dates: start: 201503
  7. EPOETIN BETA [Suspect]
     Active Substance: ERYTHROPOIETIN
     Route: 058
  8. IRON [Suspect]
     Active Substance: IRON
     Route: 042
     Dates: start: 201408
  9. ERYTHROPOIETIN [Suspect]
     Active Substance: ERYTHROPOIETIN
     Route: 058
  10. VENOFER [Suspect]
     Active Substance: IRON SUCROSE
     Route: 042
     Dates: start: 201408
  11. NOVOTHYROX [Suspect]
     Active Substance: LEVOTHYROXINE SODIUM
     Indication: HYPOTHYROIDISM
     Dates: start: 201505
  12. SPIRAMYCIN [Suspect]
     Active Substance: SPIRAMYCIN
     Dates: start: 201505
  13. ASCORBIC ACID W/CALCIUM GLUBIONATE(MACALVIT) [Concomitant]
     Dates: start: 201503
  14. IRON [Suspect]
     Active Substance: IRON
     Route: 048
     Dates: start: 201503
  15. TORASEMIDE [Suspect]
     Active Substance: TORSEMIDE
     Route: 065
  16. ASCORBIC ACID W/FERROUS SULFATE(KENDURAL C) [Concomitant]
     Active Substance: ASCORBIC ACID\FERROUS SULFATE
     Dates: start: 201503
  17. IRON [Suspect]
     Active Substance: IRON
     Route: 048
     Dates: start: 201408
  18. FERINJECT [Suspect]
     Active Substance: FERRIC CARBOXYMALTOSE
     Route: 042
     Dates: start: 201408, end: 201408
  19. ASCORBIC ACID. [Suspect]
     Active Substance: ASCORBIC ACID
     Dates: start: 201503
  20. ASCORBIC ACID W/CALCIUM GLUBIONATE [Concomitant]
     Active Substance: ASCORBIC ACID\CALCIUM GLUBIONATE
     Route: 065
     Dates: start: 201503
  21. FOLIC ACID. [Concomitant]
     Active Substance: FOLIC ACID
     Route: 048
     Dates: start: 201503
  22. MALTOFER (IRON POLYMALTOSE) [Suspect]
     Active Substance: IRON POLYMALTOSE
     Route: 048
     Dates: start: 201503
  23. SIMVASTATIN. [Suspect]
     Active Substance: SIMVASTATIN
     Route: 065
     Dates: end: 2015
  24. ALFACALCIDOL [Concomitant]
     Active Substance: ALFACALCIDOL
  25. ERYTHROPOIETIN [Suspect]
     Active Substance: ERYTHROPOIETIN
     Route: 058
     Dates: start: 201508
  26. FERINJECT [Suspect]
     Active Substance: FERRIC CARBOXYMALTOSE
     Route: 042

REACTIONS (11)
  - Blood albumin decreased [Unknown]
  - Live birth [Recovered/Resolved]
  - Haematocrit decreased [Unknown]
  - Maternal exposure during pregnancy [Recovered/Resolved]
  - Premature delivery [Recovered/Resolved]
  - Oedema peripheral [Unknown]
  - Contraindicated product administered [Unknown]
  - Hypothyroidism [Unknown]
  - Premature rupture of membranes [Recovered/Resolved]
  - Toxoplasmosis [Unknown]
  - Cystitis [Unknown]
